FAERS Safety Report 4695686-0 (Version None)
Quarter: 2005Q2

REPORT INFORMATION
  Report Type: 
  Country: None (occurrence: None)
  Receive Date: 20050616
  Receipt Date: 20050616
  Transmission Date: 20051028
  Serious: Yes (Other)
  Sender: FDA-Public Use
  Company Number: None

PATIENT
  Age: 47 Year
  Sex: Male
  Weight: 124.7392 kg

DRUGS (1)
  1. PRIVATE BRAND ? NICOTINE PATCHES  WALMART [Suspect]
     Indication: SMOKING CESSATION THERAPY
     Dates: start: 20050401, end: 20050615

REACTIONS (8)
  - APPLICATION SITE IRRITATION [None]
  - DIZZINESS [None]
  - FOOD POISONING [None]
  - HYPERHIDROSIS [None]
  - IMPAIRED WORK ABILITY [None]
  - MALAISE [None]
  - PHARMACEUTICAL PRODUCT COMPLAINT [None]
  - STOMACH DISCOMFORT [None]
